FAERS Safety Report 4589171-4 (Version None)
Quarter: 2005Q1

REPORT INFORMATION
  Report Type: 
  Country: None (occurrence: None)
  Receive Date: 20050215
  Receipt Date: 20050215
  Transmission Date: 20050727
  Serious: Yes (Other)
  Sender: FDA-Public Use
  Company Number: None

PATIENT
  Age: 64 Year
  Sex: Female
  Weight: 60.782 kg

DRUGS (1)
  1. BEXTRA [Suspect]
     Indication: ARTHRITIS
     Dosage: DAILY
     Dates: start: 20030410, end: 20030601

REACTIONS (3)
  - ERYTHEMA [None]
  - SKIN SWELLING [None]
  - TRANSIENT ISCHAEMIC ATTACK [None]
